FAERS Safety Report 23149431 (Version 2)
Quarter: 2023Q4

REPORT INFORMATION
  Report Type: Spontaneous
  Country: TH (occurrence: TH)
  Receive Date: 20231106
  Receipt Date: 20231121
  Transmission Date: 20240110
  Serious: Yes (Other)
  Sender: FDA-Public Use
  Company Number: TH-SUN PHARMACEUTICAL INDUSTRIES LTD-2023R1-416615

PATIENT
  Sex: Male

DRUGS (4)
  1. ACETAMINOPHEN\TRAMADOL [Suspect]
     Active Substance: ACETAMINOPHEN\TRAMADOL
     Indication: Fibromyalgia
     Dosage: UNK
     Route: 065
  2. ETORICOXIB [Concomitant]
     Active Substance: ETORICOXIB
     Indication: Fibromyalgia
     Dosage: UNK
     Route: 065
  3. EPERISONE [Concomitant]
     Active Substance: EPERISONE
     Indication: Fibromyalgia
     Route: 065
  4. METHYLPHENIDATE [Concomitant]
     Active Substance: METHYLPHENIDATE
     Indication: Attention deficit hyperactivity disorder
     Dosage: 10 MILLIGRAM, PRN
     Route: 065

REACTIONS (1)
  - Depersonalisation/derealisation disorder [Recovered/Resolved]
